FAERS Safety Report 7636318-9 (Version None)
Quarter: 2011Q3

REPORT INFORMATION
  Report Type: 
  Country: None (occurrence: None)
  Receive Date: 20110726
  Receipt Date: 20110706
  Transmission Date: 20111222
  Serious: Yes (Other)
  Sender: FDA-Public Use
  Company Number: US-GLAXOSMITHKLINE-A0892239A

PATIENT
  Age: 72 Year
  Sex: Male

DRUGS (36)
  1. LISINOPRIL [Concomitant]
  2. AVANDIA [Suspect]
     Indication: TYPE 2 DIABETES MELLITUS
     Dosage: 4MG PER DAY
     Route: 048
     Dates: start: 20030401, end: 20080214
  3. FISH OIL [Concomitant]
  4. DOXAZOSIN MESYLATE [Concomitant]
  5. FLUOXETINE [Concomitant]
  6. PLAVIX [Concomitant]
  7. VICODIN [Concomitant]
  8. INTAL [Concomitant]
  9. FLU SHOT [Concomitant]
     Dates: start: 20071009
  10. LEXAPRO [Concomitant]
  11. TETANUS IMMUNE GLOBULIN (HUMAN) [Concomitant]
     Dates: start: 20070320
  12. GLIPIZIDE [Concomitant]
  13. DICYCLOMINE [Concomitant]
  14. ONE A DAY VITAMINS [Concomitant]
  15. SIMVASTATIN [Concomitant]
  16. ALPRAZOLAM [Concomitant]
  17. CEPHALEXIN [Concomitant]
  18. FLU SHOT [Concomitant]
     Dates: start: 20081001
  19. HYDROCHLOROTHIAZIDE [Concomitant]
  20. FERROUS SULFATE TAB [Concomitant]
  21. GABAPENTIN [Concomitant]
  22. FORADIL [Concomitant]
  23. CLINDAMYCIN [Concomitant]
  24. LONOX [Concomitant]
  25. OMEPRAZOLE [Concomitant]
  26. TYLENOL-500 [Concomitant]
  27. LAMISIL [Concomitant]
  28. OXYCODONE HCL [Concomitant]
  29. NYSTATIN [Concomitant]
  30. PNEUMONIA SHOT [Concomitant]
     Dates: start: 20050501
  31. METFORMIN HCL [Concomitant]
  32. VERAPAMIL [Concomitant]
  33. CARISOPRODOL [Concomitant]
  34. FLU SHOT [Concomitant]
     Dates: start: 20061019
  35. COMBIVENT [Concomitant]
  36. TRIAMCINOLONE ACETONIDE [Concomitant]

REACTIONS (3)
  - DISABILITY [None]
  - CEREBROVASCULAR ACCIDENT [None]
  - DYSMORPHISM [None]
